FAERS Safety Report 12068196 (Version 1)
Quarter: 2016Q1

REPORT INFORMATION
  Report Type: Spontaneous
  Country: US (occurrence: US)
  Receive Date: 20160211
  Receipt Date: 20160211
  Transmission Date: 20160526
  Serious: No
  Sender: FDA-Public Use
  Company Number: US-SMITH AND NEPHEW, INC-2015SMT00427

PATIENT
  Age: 54 Year
  Sex: Female
  Weight: 57.6 kg

DRUGS (4)
  1. TRENTAL [Concomitant]
     Active Substance: PENTOXIFYLLINE
     Dosage: 800 UNKNOWN, 3X/DAY
  2. MOTRIN [Concomitant]
     Active Substance: IBUPROFEN
     Indication: PAIN
     Dosage: UNK, AS NEEDED
  3. REGRANEX [Suspect]
     Active Substance: BECAPLERMIN
     Indication: SEGMENTED HYALINISING VASCULITIS
     Dosage: UNK UNK, 1X/DAY
     Route: 061
     Dates: start: 20150929
  4. ASPIRIN. [Concomitant]
     Active Substance: ASPIRIN
     Dosage: 81 MG, 1X/DAY

REACTIONS (4)
  - Procedural pain [Unknown]
  - Incorrect drug administration duration [Unknown]
  - Application site pain [Recovering/Resolving]
  - Off label use [Unknown]

NARRATIVE: CASE EVENT DATE: 2015
